FAERS Safety Report 8982873 (Version 1)
Quarter: 2012Q4

REPORT INFORMATION
  Report Type: 
  Country: CL (occurrence: CL)
  Receive Date: 20121224
  Receipt Date: 20121224
  Transmission Date: 20130627
  Serious: Yes (Other)
  Sender: FDA-Public Use
  Company Number: CL-PFIZER INC-2012324754

PATIENT
  Sex: Male

DRUGS (3)
  1. XALATAN [Suspect]
     Indication: GLAUCOMA
     Dosage: UNK
  2. GLAUCOTENSIL [Concomitant]
  3. BETOPTIC-S [Concomitant]

REACTIONS (2)
  - Hearing impaired [Unknown]
  - Nervousness [Unknown]
